FAERS Safety Report 5816056-5 (Version None)
Quarter: 2008Q3

REPORT INFORMATION
  Report Type: 
  Country: None (occurrence: None)
  Receive Date: 20080716
  Receipt Date: 20080716
  Transmission Date: 20090109
  Serious: No
  Sender: FDA-Public Use
  Company Number: None

PATIENT
  Sex: Female

DRUGS (1)
  1. REBIF [Suspect]
     Dosage: 44MCG 3 X WEEKLY SQ
     Route: 058

REACTIONS (3)
  - FEELING ABNORMAL [None]
  - PRURITUS [None]
  - URTICARIA [None]
